FAERS Safety Report 9473033 (Version 2)
Quarter: 2013Q3

REPORT INFORMATION
  Report Type: Spontaneous
  Country: US (occurrence: US)
  Receive Date: 20130823
  Receipt Date: 20130823
  Transmission Date: 20140515
  Serious: No
  Sender: FDA-Public Use
  Company Number: US-BRISTOL-MYERS SQUIBB COMPANY-17348855

PATIENT
  Age: 33 Year
  Sex: Female
  Weight: 53.06 kg

DRUGS (7)
  1. SPRYCEL [Suspect]
     Indication: CHRONIC MYELOID LEUKAEMIA
     Dosage: 75MG
  2. VENLAFAXINE HCL [Concomitant]
  3. PRENATAL VITAMINS [Concomitant]
     Indication: ALOPECIA
  4. BIOTIN [Concomitant]
     Indication: ALOPECIA
  5. IRON [Concomitant]
  6. VITAMIN C [Concomitant]
  7. LORAZEPAM [Concomitant]
     Indication: ANXIETY

REACTIONS (10)
  - Hypotension [Unknown]
  - Pallor [Not Recovered/Not Resolved]
  - Alopecia [Unknown]
  - Anxiety [Unknown]
  - Depression [Unknown]
  - Weight increased [Unknown]
  - Dark circles under eyes [Not Recovered/Not Resolved]
  - Tooth disorder [Unknown]
  - Nail disorder [Unknown]
  - Pain [Unknown]
